FAERS Safety Report 8154506-2 (Version None)
Quarter: 2012Q1

REPORT INFORMATION
  Report Type: 
  Country: None (occurrence: None)
  Receive Date: 20120221
  Receipt Date: 20120214
  Transmission Date: 20120608
  Serious: Yes (Hospitalization)
  Sender: FDA-Public Use
  Company Number: TR-ABBOTT-12P-161-0905103-00

PATIENT
  Sex: Female
  Weight: 54 kg

DRUGS (7)
  1. EPOGEN [Concomitant]
     Indication: ANAEMIA
     Route: 058
     Dates: start: 20030101, end: 20120106
  2. ANTI-FOSFAT [Concomitant]
     Indication: BLOOD PHOSPHORUS ABNORMAL
     Dosage: 3X3
     Route: 048
     Dates: start: 20030101, end: 20120106
  3. VENOFER [Concomitant]
     Indication: ANAEMIA
     Route: 042
     Dates: start: 20030101, end: 20120106
  4. EPOGEN [Concomitant]
     Indication: RENAL FAILURE CHRONIC
  5. BEMIKS [Concomitant]
     Indication: VITAMIN SUPPLEMENTATION
     Dosage: 1X1
     Route: 048
     Dates: start: 20030101, end: 20120106
  6. ZEMPLAR [Suspect]
     Indication: HYPERPARATHYROIDISM SECONDARY
     Route: 042
     Dates: start: 20100601, end: 20120106
  7. L-CARNITINE [Concomitant]
     Indication: MINERAL SUPPLEMENTATION
     Route: 042
     Dates: start: 20030101, end: 20120106

REACTIONS (1)
  - RENAL TRANSPLANT [None]
